FAERS Safety Report 5124702-7 (Version None)
Quarter: 2006Q4

REPORT INFORMATION
  Report Type: 
  Country: None (occurrence: None)
  Receive Date: 20061006
  Receipt Date: 20060920
  Transmission Date: 20070319
  Serious: Yes (Hospitalization)
  Sender: FDA-Public Use
  Company Number: REM_00249_2006

PATIENT
  Age: 35 Year
  Sex: Female

DRUGS (3)
  1. REMODULIN [Suspect]
     Indication: PULMONARY HYPERTENSION
     Dosage: 54 NG/KG/MIN IV
     Route: 042
     Dates: start: 20041216
  2. BOSENTAN [Concomitant]
  3. PENTOXIFYLLINE [Concomitant]

REACTIONS (2)
  - CATHETER RELATED INFECTION [None]
  - STENOTROPHOMONAS SEPSIS [None]
